FAERS Safety Report 5023055-2 (Version None)
Quarter: 2006Q2

REPORT INFORMATION
  Report Type: 
  Country: None (occurrence: None)
  Receive Date: 20060426
  Receipt Date: 20060123
  Transmission Date: 20061013
  Serious: Yes (Other)
  Sender: FDA-Public Use
  Company Number: 2005155168

PATIENT
  Age: 70 Year
  Sex: Male

DRUGS (12)
  1. LYRICA [Suspect]
     Indication: ILL-DEFINED DISORDER
     Dosage: 100 MG (50 MG, 2 IN 1 D)
  2. ACTOS [Concomitant]
  3. ESGIC (BUTALBITAL, CAFFEINE, PARACETAMOL) [Concomitant]
  4. HYZAAR [Concomitant]
  5. LIPITOR [Concomitant]
  6. LISINOPRIL [Concomitant]
  7. PRILOSEC [Concomitant]
  8. QUININE SULFATE [Concomitant]
  9. RHINOCORT [Concomitant]
  10. SKELAXIN [Concomitant]
  11. TOPROL-XL [Concomitant]
  12. ULTRAM [Concomitant]

REACTIONS (1)
  - MYALGIA [None]
